FAERS Safety Report 6162163-X (Version None)
Quarter: 2009Q2

REPORT INFORMATION
  Report Type: 
  Country: None (occurrence: None)
  Receive Date: 20090417
  Receipt Date: 20090413
  Transmission Date: 20091009
  Serious: Yes (Death)
  Sender: FDA-Public Use
  Company Number: 2009SP007802

PATIENT
  Age: 56 Year
  Sex: Male

DRUGS (1)
  1. PEGETRON (PEGINTERFERON ALFA-2B W/ RIBAVIRIN) (PEGYLATED INTERFERON AL [Suspect]
     Indication: DRUG USE FOR UNKNOWN INDICATION
     Dosage: SC; PO
     Route: 058

REACTIONS (3)
  - DISEASE COMPLICATION [None]
  - DYSPNOEA [None]
  - REFUSAL OF TREATMENT BY PATIENT [None]
